FAERS Safety Report 25523482 (Version 1)
Quarter: 2025Q3

REPORT INFORMATION
  Report Type: Spontaneous
  Country: US (occurrence: US)
  Receive Date: 20250707
  Receipt Date: 20250707
  Transmission Date: 20251020
  Serious: No
  Sender: BRISTOL-MYERS SQUIBB COMPANY
  Company Number: US-BRISTOL-MYERS SQUIBB COMPANY-2025-095339

PATIENT
  Age: 68 Year
  Sex: Male

DRUGS (2)
  1. SOTYKTU [Suspect]
     Active Substance: DEUCRAVACITINIB
     Indication: Psoriasis
     Route: 048
     Dates: start: 202506
  2. BIMEKIZUMAB [Concomitant]
     Active Substance: BIMEKIZUMAB
     Indication: Product used for unknown indication

REACTIONS (1)
  - Fatigue [Unknown]
